FAERS Safety Report 7883234-3 (Version None)
Quarter: 2011Q4

REPORT INFORMATION
  Report Type: 
  Country: None (occurrence: None)
  Receive Date: 20111031
  Receipt Date: 20111031
  Transmission Date: 20120403
  Serious: No
  Sender: FDA-Public Use
  Company Number: None

PATIENT
  Sex: Female
  Weight: 45.8133 kg

DRUGS (1)
  1. GENERIC IMITREX 100MG UNKNOWN [Suspect]
     Indication: MIGRAINE
     Dosage: 100MG QD-PRN PO
     Route: 048
     Dates: start: 20110707

REACTIONS (1)
  - THERAPEUTIC RESPONSE DECREASED [None]
